FAERS Safety Report 7988414-4 (Version None)
Quarter: 2011Q4

REPORT INFORMATION
  Report Type: 
  Country: None (occurrence: None)
  Receive Date: 20111216
  Receipt Date: 20111212
  Transmission Date: 20120403
  Serious: Yes (Hospitalization)
  Sender: FDA-Public Use
  Company Number: FR-ROCHE-1021509

PATIENT
  Sex: Female
  Weight: 73 kg

DRUGS (3)
  1. VEMURAFENIB [Suspect]
     Indication: MALIGNANT MELANOMA
     Route: 048
     Dates: start: 20111021, end: 20111102
  2. METFORMIN HCL [Concomitant]
     Dosage: 2 TABLETS DAILY
  3. METFORMIN HCL [Concomitant]
     Dosage: STOPPED AND REPLACED WITH INSULIN

REACTIONS (3)
  - LUNG INFECTION [None]
  - RASH MACULO-PAPULAR [None]
  - DRUG ERUPTION [None]
